FAERS Safety Report 7724922-9 (Version None)
Quarter: 2011Q3

REPORT INFORMATION
  Report Type: 
  Country: None (occurrence: None)
  Receive Date: 20110901
  Receipt Date: 20110819
  Transmission Date: 20111222
  Serious: Yes (Hospitalization)
  Sender: FDA-Public Use
  Company Number: FR-BAYER-2011-075909

PATIENT
  Age: 70 Year
  Sex: Male

DRUGS (2)
  1. GADAVIST [Suspect]
     Indication: PERIPHERAL ARTERIAL OCCLUSIVE DISEASE
  2. GADAVIST [Suspect]
     Indication: ANGIOGRAM
     Dosage: 15 ML, ONCE
     Dates: start: 20110214, end: 20110214

REACTIONS (6)
  - HYPOTENSION [None]
  - MYOCARDIAL INFARCTION [None]
  - GENERALISED ERYTHEMA [None]
  - ACUTE CORONARY SYNDROME [None]
  - ANAPHYLACTIC SHOCK [None]
  - HYPERHIDROSIS [None]
